FAERS Safety Report 10040935 (Version 2)
Quarter: 2014Q2

REPORT INFORMATION
  Report Type: Spontaneous
  Country: US (occurrence: US)
  Receive Date: 20140327
  Receipt Date: 20140509
  Transmission Date: 20141212
  Serious: No
  Sender: FDA-Public Use
  Company Number: US-PFIZER INC-2014086298

PATIENT
  Age: 53 Year
  Sex: Female

DRUGS (4)
  1. DILANTIN-125 [Suspect]
     Dosage: UNK
  2. NORGESIC [Suspect]
     Dosage: UNK
  3. ELAVIL [Suspect]
     Dosage: UNK
  4. AMPICILLIN [Suspect]
     Dosage: UNK

REACTIONS (1)
  - Drug hypersensitivity [Unknown]
